FAERS Safety Report 4883655-7 (Version None)
Quarter: 2006Q1

REPORT INFORMATION
  Report Type: 
  Country: None (occurrence: None)
  Receive Date: 20060113
  Receipt Date: 20051229
  Transmission Date: 20060701
  Serious: Yes (Hospitalization)
  Sender: FDA-Public Use
  Company Number: US200601000079

PATIENT
  Age: 22 Year
  Sex: Male

DRUGS (2)
  1. HUMATROPE [Suspect]
     Indication: PITUITARY TUMOUR
  2. HUMATROPEN (HUMATROPEN) [Concomitant]

REACTIONS (2)
  - NEPHROLITHIASIS [None]
  - PHARMACEUTICAL PRODUCT COMPLAINT [None]
